FAERS Safety Report 8799743 (Version 1)
Quarter: 2012Q4

REPORT INFORMATION
  Report Type: 
  Country: US (occurrence: US)
  Receive Date: 20120919
  Receipt Date: 20120919
  Transmission Date: 20130627
  Serious: Yes (Hospitalization)
  Sender: FDA-Public Use
  Company Number: US-BIOGENIDEC-2012BI037483

PATIENT
  Age: 42 Year
  Sex: Female

DRUGS (1)
  1. AVONEX [Suspect]
     Indication: MULTIPLE SCLEROSIS
     Route: 030
     Dates: start: 20030507

REACTIONS (11)
  - Cerebrovascular accident [Recovered/Resolved]
  - Migraine [Recovered/Resolved]
  - Dysarthria [Recovered/Resolved]
  - Sensation of heaviness [Recovered/Resolved]
  - Visual impairment [Not Recovered/Not Resolved]
  - Aphasia [Recovered/Resolved]
  - Hyperhidrosis [Not Recovered/Not Resolved]
  - Convulsion [Recovered/Resolved]
  - Asthenia [Not Recovered/Not Resolved]
  - Vomiting [Recovered/Resolved]
  - Arterial occlusive disease [Not Recovered/Not Resolved]
